FAERS Safety Report 8832971 (Version 1)
Quarter: 2012Q4

REPORT INFORMATION
  Report Type: 
  Country: NL (occurrence: NL)
  Receive Date: 20121010
  Receipt Date: 20121010
  Transmission Date: 20130627
  Serious: Yes (Other)
  Sender: FDA-Public Use
  Company Number: PHHY2012NL086309

PATIENT
  Age: 63 Year
  Sex: Female

DRUGS (8)
  1. QUINIDINE [Suspect]
     Indication: VENTRICULAR ARRHYTHMIA
     Route: 048
  2. QUINIDINE [Interacting]
     Dosage: 600 mg, TID
  3. FLUCLOXACILLIN [Interacting]
     Indication: STAPHYLOCOCCUS TEST POSITIVE
     Dosage: 1 g, 6QD
     Route: 042
  4. FLUCLOXACILLIN [Interacting]
     Dosage: 2 g, 6QD
  5. RIFAMPICIN [Concomitant]
  6. FUROSEMIDE [Concomitant]
  7. SPIRONOLACTONE [Concomitant]
  8. PERINDOPRIL [Concomitant]

REACTIONS (2)
  - Drug level below therapeutic [Recovered/Resolved]
  - Drug interaction [Unknown]
